FAERS Safety Report 5016504-7 (Version None)
Quarter: 2006Q2

REPORT INFORMATION
  Report Type: 
  Country: None (occurrence: None)
  Receive Date: 20060602
  Receipt Date: 20060511
  Transmission Date: 20061013
  Serious: Yes (Hospitalization, Other)
  Sender: FDA-Public Use
  Company Number: PHEH2006US06254

PATIENT
  Age: 47 Year
  Sex: Female
  Weight: 63.718 kg

DRUGS (3)
  1. EXJADE [Suspect]
     Indication: BLOOD IRON INCREASED
     Dosage: 1000 MG, QD
     Route: 048
     Dates: start: 20060420, end: 20060427
  2. FUROSEMIDE [Concomitant]
     Indication: RENAL FAILURE
     Dosage: 120 MG, BID
     Route: 048
  3. BLOOD CELLS, PACKED HUMAN [Concomitant]
     Dosage: 2 UNK, UNITS
     Dates: start: 20060401, end: 20060401

REACTIONS (4)
  - BLOOD CREATININE INCREASED [None]
  - BLOOD UREA INCREASED [None]
  - DYSPNOEA [None]
  - HAEMATOCRIT DECREASED [None]
